FAERS Safety Report 4911944-6 (Version None)
Quarter: 2006Q1

REPORT INFORMATION
  Report Type: 
  Country: None (occurrence: None)
  Receive Date: 20060213
  Receipt Date: 20060203
  Transmission Date: 20060701
  Serious: Yes (Hospitalization, Other)
  Sender: FDA-Public Use
  Company Number: 2005127967

PATIENT
  Age: 62 Year
  Sex: Male
  Weight: 97 kg

DRUGS (7)
  1. GENOTROPIN [Suspect]
     Indication: HYPOPITUITARISM
     Dosage: 0.3 MG (0.3 MG, DAILY), SUBCUTANEOUS
     Route: 058
     Dates: start: 20040914, end: 20050822
  2. HYZAAR [Concomitant]
  3. HYDROCORTISONE [Concomitant]
  4. TESTOSTERONE [Concomitant]
  5. LEVOTHYROXINE SODIUM [Concomitant]
  6. CARBASALATE CALCIUM (CARBASALATE CALCIUM) [Concomitant]
  7. SIMVASTATIN [Concomitant]

REACTIONS (1)
  - PROSTATE CANCER [None]
